FAERS Safety Report 5908120-7 (Version None)
Quarter: 2008Q4

REPORT INFORMATION
  Report Type: 
  Country: None (occurrence: None)
  Receive Date: 20081003
  Receipt Date: 20080825
  Transmission Date: 20090506
  Serious: Yes (Hospitalization)
  Sender: FDA-Public Use
  Company Number: NL-ABBOTT-08P-062-0456236-00

PATIENT
  Age: 47 Year
  Sex: Male
  Weight: 85 kg

DRUGS (3)
  1. ADALIMUMAB [Suspect]
     Indication: SERONEGATIVE ARTHRITIS
     Route: 058
  2. LEFLUNOMIDE [Concomitant]
     Indication: SERONEGATIVE ARTHRITIS
     Route: 048
  3. PREDNISOLONE [Concomitant]
     Indication: SERONEGATIVE ARTHRITIS

REACTIONS (1)
  - WHIPPLE'S DISEASE [None]
